FAERS Safety Report 8462969-8 (Version None)
Quarter: 2012Q2

REPORT INFORMATION
  Report Type: 
  Country: None (occurrence: None)
  Receive Date: 20120625
  Receipt Date: 20120615
  Transmission Date: 20120825
  Serious: Yes (Other)
  Sender: FDA-Public Use
  Company Number: CA-GLAXOSMITHKLINE-A0981329A

PATIENT
  Age: 62 Year
  Sex: Male

DRUGS (5)
  1. ASPIRIN [Concomitant]
  2. CRESTOR [Concomitant]
  3. PERINDOPRIL ERBUMINE [Concomitant]
  4. AVODART [Suspect]
     Indication: BENIGN PROSTATIC HYPERPLASIA
     Route: 065
  5. CARDIZEM [Concomitant]

REACTIONS (2)
  - BREAST CANCER [None]
  - LOCAL SWELLING [None]
